FAERS Safety Report 10416651 (Version 2)
Quarter: 2014Q3

REPORT INFORMATION
  Report Type: Spontaneous
  Country: US (occurrence: None)
  Receive Date: 20140826
  Receipt Date: 20140930
  Transmission Date: 20150326
  Serious: Yes (Hospitalization)
  Sender: FDA-Public Use
  Company Number: 2014RT000095

PATIENT
  Age: 20 Year
  Sex: Female

DRUGS (1)
  1. PROCYSBI DELAYED-RELEASE [Suspect]
     Active Substance: CYSTEAMINE BITARTRATE
     Indication: RENAL FAILURE CHRONIC
     Route: 048
     Dates: start: 20140311

REACTIONS (2)
  - Infection [None]
  - Pneumonia [None]

NARRATIVE: CASE EVENT DATE: 20140811
